FAERS Safety Report 5478162-7 (Version None)
Quarter: 2007Q4

REPORT INFORMATION
  Report Type: 
  Country: None (occurrence: None)
  Receive Date: 20071005
  Receipt Date: 20070205
  Transmission Date: 20080405
  Serious: No
  Sender: FDA-Public Use
  Company Number: US-BRISTOL-MYERS SQUIBB COMPANY-13669668

PATIENT

DRUGS (1)
  1. AVAPRO [Suspect]
     Dates: end: 20060801

REACTIONS (1)
  - MUSCULOSKELETAL STIFFNESS [None]
